FAERS Safety Report 20956356 (Version 1)
Quarter: 2022Q2

REPORT INFORMATION
  Report Type: Spontaneous
  Country: US (occurrence: None)
  Receive Date: 20220614
  Receipt Date: 20220614
  Transmission Date: 20220721
  Serious: Yes (Hospitalization)
  Sender: FDA-Public Use
  Company Number: None

PATIENT
  Age: 72 Year
  Sex: Male

DRUGS (3)
  1. VENLAFAXINE [Suspect]
     Active Substance: VENLAFAXINE HYDROCHLORIDE
     Indication: Depression
     Dates: start: 20220204, end: 20220219
  2. VENLAFAXINE [Suspect]
     Active Substance: VENLAFAXINE HYDROCHLORIDE
     Dates: start: 20220131, end: 20220216
  3. CHLORTHALIDONE [Suspect]
     Active Substance: CHLORTHALIDONE

REACTIONS (4)
  - Confusional state [None]
  - Dizziness [None]
  - Hyponatraemia [None]
  - Fall [None]

NARRATIVE: CASE EVENT DATE: 20220228
